FAERS Safety Report 7804936 (Version 9)
Quarter: 2013Q4

REPORT INFORMATION
  Report Type: Spontaneous
  Country: US (occurrence: US)
  Receive Date: 20110209
  Receipt Date: 20131007
  Transmission Date: 20140711
  Serious: Yes (Hospitalization)
  Sender: FDA-Public Use
  Company Number: US-BIOGENIDEC-2011BI004050

PATIENT
  Age: 58 Year
  Sex: Female

DRUGS (3)
  1. AVONEX [Suspect]
     Indication: MULTIPLE SCLEROSIS
     Route: 030
  2. AVONEX [Suspect]
     Indication: MULTIPLE SCLEROSIS
     Route: 030
     Dates: start: 20020426, end: 20030601
  3. AVONEX [Suspect]
     Indication: MULTIPLE SCLEROSIS
     Route: 030
     Dates: start: 20100305

REACTIONS (26)
  - Gastric ulcer helicobacter [Recovered/Resolved]
  - Ulcer haemorrhage [Recovered/Resolved]
  - Haemorrhage [Unknown]
  - Gastrointestinal bacterial infection [Not Recovered/Not Resolved]
  - Bronchitis [Recovered/Resolved]
  - Blood pressure increased [Not Recovered/Not Resolved]
  - Blood pressure abnormal [Recovered/Resolved]
  - Blood iron decreased [Recovered/Resolved]
  - Gait disturbance [Recovered/Resolved]
  - Aphagia [Recovered/Resolved]
  - Dysarthria [Not Recovered/Not Resolved]
  - General symptom [Recovered/Resolved]
  - Migraine [Not Recovered/Not Resolved]
  - Aphasia [Not Recovered/Not Resolved]
  - Frustration [Not Recovered/Not Resolved]
  - Temperature intolerance [Recovered/Resolved]
  - Tooth disorder [Not Recovered/Not Resolved]
  - Muscle spasticity [Not Recovered/Not Resolved]
  - Nausea [Recovered/Resolved]
  - Pyrexia [Recovered/Resolved]
  - Vomiting [Recovered/Resolved]
  - Diarrhoea [Recovered/Resolved]
  - Haemoglobin decreased [Unknown]
  - Fatigue [Recovered/Resolved]
  - Asthenia [Recovered/Resolved]
  - Injection site pain [Recovered/Resolved]
